APPROVED DRUG PRODUCT: FLOVENT
Active Ingredient: FLUTICASONE PROPIONATE
Strength: 0.088MG/INH
Dosage Form/Route: POWDER;INHALATION
Application: N020549 | Product #002
Applicant: GLAXOSMITHKLINE
Approved: Nov 7, 1997 | RLD: No | RS: No | Type: DISCN